FAERS Safety Report 7767142-4 (Version None)
Quarter: 2011Q3

REPORT INFORMATION
  Report Type: 
  Country: None (occurrence: None)
  Receive Date: 20110922
  Receipt Date: 20100811
  Transmission Date: 20111222
  Serious: No
  Sender: FDA-Public Use
  Company Number: US-ASTRAZENECA-2010SE34024

PATIENT
  Age: 64 Year
  Sex: Male
  Weight: 72.6 kg

DRUGS (11)
  1. SEROQUEL [Suspect]
     Dosage: AT NIGHT
     Route: 048
     Dates: start: 20080101
  2. HALCION [Concomitant]
  3. SIMVASTATIN [Concomitant]
  4. ROXICODONE [Concomitant]
  5. OXYCODONE HCL [Concomitant]
  6. SEROQUEL [Suspect]
     Indication: SLEEP DISORDER
     Route: 048
     Dates: start: 20071001
  7. METHADONE HCL [Concomitant]
  8. PROZAC [Concomitant]
  9. BUSPAR [Concomitant]
  10. XANAX [Concomitant]
  11. SEROQUEL [Suspect]
     Route: 048
     Dates: start: 20100401, end: 20100501

REACTIONS (4)
  - DRUG DOSE OMISSION [None]
  - DRUG DISPENSING ERROR [None]
  - INSOMNIA [None]
  - FEELING ABNORMAL [None]
